FAERS Safety Report 7388080-5 (Version None)
Quarter: 2011Q2

REPORT INFORMATION
  Report Type: 
  Country: None (occurrence: None)
  Receive Date: 20110401
  Receipt Date: 20110328
  Transmission Date: 20111010
  Serious: No
  Sender: FDA-Public Use
  Company Number: US-PFIZER INC-2011068462

PATIENT

DRUGS (2)
  1. PRISTIQ [Suspect]
     Dosage: QOD
     Dates: start: 20100101
  2. PRISTIQ [Suspect]
     Dosage: Q 3 DAYS

REACTIONS (1)
  - DRUG WITHDRAWAL SYNDROME [None]
